FAERS Safety Report 23230148 (Version 1)
Quarter: 2023Q4

REPORT INFORMATION
  Report Type: Spontaneous
  Country: US (occurrence: None)
  Receive Date: 20231122
  Receipt Date: 20231122
  Transmission Date: 20240109
  Serious: Yes (Hospitalization)
  Sender: FDA-Public Use
  Company Number: None

PATIENT
  Age: 82 Year
  Sex: Male
  Weight: 90.1 kg

DRUGS (1)
  1. BREYANZI [Suspect]
     Active Substance: LISOCABTAGENE MARALEUCEL
     Indication: Diffuse large B-cell lymphoma
     Dosage: FREQUENCY : ONCE;?
     Route: 042
     Dates: start: 20231003, end: 20231003

REACTIONS (7)
  - Rhinovirus infection [None]
  - Confusional state [None]
  - Cytokine release syndrome [None]
  - Immune effector cell-associated neurotoxicity syndrome [None]
  - Serum ferritin increased [None]
  - Dysphagia [None]
  - Abdominal pain [None]

NARRATIVE: CASE EVENT DATE: 20231023
